FAERS Safety Report 7539635-6 (Version None)
Quarter: 2011Q2

REPORT INFORMATION
  Report Type: 
  Country: None (occurrence: None)
  Receive Date: 20110610
  Receipt Date: 20110527
  Transmission Date: 20111010
  Serious: Yes (Hospitalization)
  Sender: FDA-Public Use
  Company Number: US-SANOFI-AVENTIS-2011SA036103

PATIENT
  Age: 68 Year
  Sex: Female

DRUGS (2)
  1. LANTUS [Suspect]
  2. LANTUS [Suspect]
     Dosage: DOSE:50 UNIT(S)
     Route: 058

REACTIONS (3)
  - CONFUSIONAL STATE [None]
  - CARBON DIOXIDE DECREASED [None]
  - LOSS OF CONSCIOUSNESS [None]
